FAERS Safety Report 4525036-1 (Version None)
Quarter: 2004Q4

REPORT INFORMATION
  Report Type: 
  Country: None (occurrence: None)
  Receive Date: 20041213
  Receipt Date: 20041203
  Transmission Date: 20050328
  Serious: Yes (Life-Threatening, Hospitalization)
  Sender: FDA-Public Use
  Company Number: US-BOEHRINGER INGELHEIM PHARMMACEUTICALS, INC.-2004-BP-13097BP

PATIENT
  Sex: Male
  Weight: 89.5 kg

DRUGS (4)
  1. MICARDIS [Suspect]
     Indication: COMPLICATIONS OF TRANSPLANTED KIDNEY
     Dates: start: 20040329
  2. PLACEBO (BLIND) [Suspect]
     Indication: COMPLICATIONS OF TRANSPLANTED KIDNEY
     Dates: start: 20040329
  3. CELLCEPT [Suspect]
     Indication: IMMUNOSUPPRESSION
     Dates: start: 20040329
  4. PREDNISONE TAB [Suspect]
     Indication: IMMUNOSUPPRESSION

REACTIONS (7)
  - ABSCESS [None]
  - BACTERIURIA [None]
  - CONDITION AGGRAVATED [None]
  - CONSTIPATION [None]
  - MARKEDLY REDUCED DIETARY INTAKE [None]
  - RENAL DISORDER [None]
  - URINARY TRACT INFECTION [None]
